FAERS Safety Report 8261941-0 (Version None)
Quarter: 2012Q2

REPORT INFORMATION
  Report Type: 
  Country: None (occurrence: None)
  Receive Date: 20120402
  Receipt Date: 20120320
  Transmission Date: 20120825
  Serious: Yes (Hospitalization)
  Sender: FDA-Public Use
  Company Number: DSA_55784_2012

PATIENT
  Age: 86 Year
  Sex: Male

DRUGS (4)
  1. DICUMAROL [Concomitant]
  2. CIPROFLOXACIN HYDROCHLORIDE [Concomitant]
  3. METRONIDAZOLE [Suspect]
     Indication: LIVER ABSCESS
     Dosage: (1.5 MG QD ORAL)
  4. DIGOXIN [Concomitant]

REACTIONS (11)
  - DYSARTHRIA [None]
  - CEREBELLAR SYNDROME [None]
  - AXONAL NEUROPATHY [None]
  - ATAXIA [None]
  - DIPLOPIA [None]
  - PARAESTHESIA [None]
  - NYSTAGMUS [None]
  - AREFLEXIA [None]
  - DECREASED VIBRATORY SENSE [None]
  - DYSSTASIA [None]
  - CEREBRAL SMALL VESSEL ISCHAEMIC DISEASE [None]
